FAERS Safety Report 7869816-3 (Version None)
Quarter: 2011Q4

REPORT INFORMATION
  Report Type: 
  Country: None (occurrence: None)
  Receive Date: 20111028
  Receipt Date: 20111028
  Transmission Date: 20120403
  Serious: Yes (Hospitalization)
  Sender: FDA-Public Use
  Company Number: None

PATIENT
  Sex: Male

DRUGS (1)
  1. REVATIO [Suspect]
     Indication: PULMONARY ARTERIAL HYPERTENSION
     Dosage: 40 MG TID PA
     Route: 051
     Dates: start: 20110719, end: 20111101

REACTIONS (4)
  - ABDOMINAL PAIN [None]
  - OXYGEN SATURATION DECREASED [None]
  - HYPOTENSION [None]
  - ABDOMINAL DISTENSION [None]
